FAERS Safety Report 8590811-3 (Version None)
Quarter: 2012Q3

REPORT INFORMATION
  Report Type: 
  Country: None (occurrence: None)
  Receive Date: 20120813
  Receipt Date: 20120806
  Transmission Date: 20120928
  Serious: Yes (Other)
  Sender: FDA-Public Use
  Company Number: US-009507513-1203USA00209

PATIENT

DRUGS (6)
  1. FLINTSTONES MULTIVITAMIN [Concomitant]
     Dosage: UNK
     Dates: start: 20031001
  2. PRAVASTATIN SODIUM [Suspect]
     Dosage: UNK
  3. VIACTIV SOFT CALCIUM CHEWS [Concomitant]
     Dosage: UNK, QD
     Dates: start: 20031001
  4. ACTOS [Concomitant]
     Indication: DIABETES MELLITUS
     Dosage: UNK
     Dates: start: 20050324, end: 20090101
  5. NORCO [Suspect]
     Dosage: UNK
  6. FOSAMAX PLUS D [Suspect]
     Indication: OSTEOPOROSIS
     Dosage: 70 MG, QD
     Route: 048
     Dates: start: 20070101, end: 20090801

REACTIONS (9)
  - FEMUR FRACTURE [None]
  - BLOOD CHOLESTEROL INCREASED [None]
  - OSTEOPENIA [None]
  - ANKLE FRACTURE [None]
  - IMPAIRED HEALING [None]
  - VITAMIN D DEFICIENCY [None]
  - BLOOD PRESSURE INCREASED [None]
  - FIBULA FRACTURE [None]
  - FALL [None]
